FAERS Safety Report 6903972-6 (Version None)
Quarter: 2010Q3

REPORT INFORMATION
  Report Type: 
  Country: None (occurrence: None)
  Receive Date: 20100804
  Receipt Date: 20090217
  Transmission Date: 20110219
  Serious: No
  Sender: FDA-Public Use
  Company Number: US-PFIZER INC-2009172796

PATIENT
  Sex: Male
  Weight: 62.1 kg

DRUGS (2)
  1. LYRICA [Suspect]
     Indication: NEURALGIA
     Dosage: 75 MG, 2X/DAY
     Dates: start: 20090206
  2. TYLENOL [Concomitant]
     Dosage: UNK

REACTIONS (2)
  - GINGIVAL BLEEDING [None]
  - TINNITUS [None]
